FAERS Safety Report 12094055 (Version 1)
Quarter: 2016Q1

REPORT INFORMATION
  Report Type: Spontaneous
  Country: NL (occurrence: NL)
  Receive Date: 20160219
  Receipt Date: 20160219
  Transmission Date: 20160526
  Serious: Yes (Other)
  Sender: FDA-Public Use
  Company Number: NL-PFIZER INC-2015278536

PATIENT
  Age: 68 Year
  Sex: Male

DRUGS (6)
  1. SOMAVERT [Suspect]
     Active Substance: PEGVISOMANT
     Indication: ACROMEGALY
     Dosage: UNK
     Route: 058
     Dates: start: 20041101
  2. SOMAVERT [Suspect]
     Active Substance: PEGVISOMANT
     Dosage: 30 MG, 6 DAYS/WEEK
     Route: 058
     Dates: start: 20150209
  3. SOMAVERT [Suspect]
     Active Substance: PEGVISOMANT
     Dosage: 30 MG, 6X/WEEK
     Route: 058
     Dates: start: 20140729
  4. SOMAVERT [Suspect]
     Active Substance: PEGVISOMANT
     Dosage: 30 MG, 6 DAYS/WEEK
     Route: 058
     Dates: start: 20140826
  5. SOMAVERT [Suspect]
     Active Substance: PEGVISOMANT
     Dosage: 30 MG 6 DAYS/WEEK
     Route: 058
     Dates: start: 20141117
  6. SOMAVERT [Suspect]
     Active Substance: PEGVISOMANT
     Dosage: 30 MG, 6X/WEEK
     Route: 058
     Dates: start: 20150505, end: 2016

REACTIONS (1)
  - Acute hepatic failure [Not Recovered/Not Resolved]
